FAERS Safety Report 20497122 (Version 2)
Quarter: 2022Q1

REPORT INFORMATION
  Report Type: Report from Study
  Country: CN (occurrence: CN)
  Receive Date: 20220221
  Receipt Date: 20220302
  Transmission Date: 20220423
  Serious: Yes (Hospitalization)
  Sender: FDA-Public Use
  Company Number: CN-BIOGEN-2022BI01096708

PATIENT
  Age: 0 Year
  Sex: Female
  Weight: 7.5 kg

DRUGS (2)
  1. SPINRAZA [Suspect]
     Active Substance: NUSINERSEN
     Indication: Spinal muscular atrophy
     Route: 037
     Dates: start: 20220112
  2. SPINRAZA [Suspect]
     Active Substance: NUSINERSEN
     Route: 037
     Dates: start: 20220126

REACTIONS (3)
  - Pneumonia respiratory syncytial viral [Recovered/Resolved]
  - Pneumonia serratia [Recovered/Resolved]
  - Pneumonia [Recovered/Resolved]

NARRATIVE: CASE EVENT DATE: 20220126
